FAERS Safety Report 25425087 (Version 1)
Quarter: 2025Q2

REPORT INFORMATION
  Report Type: Spontaneous
  Country: US (occurrence: US)
  Receive Date: 20250611
  Receipt Date: 20250611
  Transmission Date: 20250717
  Serious: No
  Sender: MYLAN
  Company Number: US-MYLANLABS-2025M1046070

PATIENT
  Sex: Female

DRUGS (12)
  1. XANAX [Interacting]
     Active Substance: ALPRAZOLAM
     Indication: Product used for unknown indication
  2. XANAX [Interacting]
     Active Substance: ALPRAZOLAM
     Route: 065
  3. XANAX [Interacting]
     Active Substance: ALPRAZOLAM
     Route: 065
  4. XANAX [Interacting]
     Active Substance: ALPRAZOLAM
  5. BENADRYL [Interacting]
     Active Substance: DIPHENHYDRAMINE HYDROCHLORIDE
     Indication: Product used for unknown indication
  6. BENADRYL [Interacting]
     Active Substance: DIPHENHYDRAMINE HYDROCHLORIDE
     Route: 065
  7. BENADRYL [Interacting]
     Active Substance: DIPHENHYDRAMINE HYDROCHLORIDE
     Route: 065
  8. BENADRYL [Interacting]
     Active Substance: DIPHENHYDRAMINE HYDROCHLORIDE
  9. TYSABRI [Concomitant]
     Active Substance: NATALIZUMAB
  10. TYSABRI [Concomitant]
     Active Substance: NATALIZUMAB
     Route: 065
  11. TYSABRI [Concomitant]
     Active Substance: NATALIZUMAB
     Route: 065
  12. TYSABRI [Concomitant]
     Active Substance: NATALIZUMAB

REACTIONS (2)
  - Feeling abnormal [Unknown]
  - Drug interaction [Unknown]
